FAERS Safety Report 8390259-0 (Version None)
Quarter: 2012Q2

REPORT INFORMATION
  Report Type: 
  Country: None (occurrence: None)
  Receive Date: 20120529
  Receipt Date: 20120522
  Transmission Date: 20120825
  Serious: Yes (Hospitalization)
  Sender: FDA-Public Use
  Company Number: US-PFIZER INC-2012124778

PATIENT

DRUGS (2)
  1. LYRICA [Suspect]
     Dosage: UNK
  2. EFFEXOR XR [Suspect]
     Dosage: UNK

REACTIONS (4)
  - COUGH [None]
  - ORAL CANDIDIASIS [None]
  - DYSPHAGIA [None]
  - PNEUMONIA [None]
